FAERS Safety Report 12168100 (Version 1)
Quarter: 2016Q1

REPORT INFORMATION
  Report Type: Report from Study
  Country: JP (occurrence: JP)
  Receive Date: 20160310
  Receipt Date: 20160310
  Transmission Date: 20160526
  Serious: Yes (Other)
  Sender: FDA-Public Use
  Company Number: JP-AMGEN-JPNCT2016030075

PATIENT
  Age: 70 Year
  Sex: Male
  Weight: 77 kg

DRUGS (3)
  1. DARBEPOETIN ALFA [Suspect]
     Active Substance: DARBEPOETIN ALFA
     Indication: MYELODYSPLASTIC SYNDROME
     Dosage: 240 MUG, QWK
     Route: 058
     Dates: start: 20150119
  2. PRIMOBOLAN                         /00044803/ [Concomitant]
     Indication: MYELODYSPLASTIC SYNDROME
     Dosage: 15 MG, UNK
     Route: 048
     Dates: start: 20141222
  3. EXJADE [Concomitant]
     Active Substance: DEFERASIROX
     Indication: MYELODYSPLASTIC SYNDROME
     Dosage: 1000 MG, UNK
     Route: 048
     Dates: start: 20150727

REACTIONS (1)
  - Appendicitis [Recovered/Resolved]

NARRATIVE: CASE EVENT DATE: 20151013
